FAERS Safety Report 8929061 (Version 2)
Quarter: 2012Q4

REPORT INFORMATION
  Report Type: 
  Country: SK (occurrence: SK)
  Receive Date: 20121127
  Receipt Date: 20121226
  Transmission Date: 20130627
  Serious: Yes (Other)
  Sender: FDA-Public Use
  Company Number: SK-MYLANLABS-2012S1023600

PATIENT
  Sex: Female

DRUGS (2)
  1. PACLITAXEL MYLAN [Suspect]
     Indication: BREAST CANCER
     Dosage: cyclic regimen
     Route: 042
  2. PACLITAXEL MYLAN [Suspect]
     Indication: BREAST CANCER
     Route: 042

REACTIONS (1)
  - Bone pain [Recovering/Resolving]
